FAERS Safety Report 22090600 (Version 2)
Quarter: 2023Q1

REPORT INFORMATION
  Report Type: Spontaneous
  Country: GB (occurrence: None)
  Receive Date: 20230313
  Receipt Date: 20230316
  Transmission Date: 20230417
  Serious: Yes (Other)
  Sender: FDA-Public Use
  Company Number: 2023A055661

PATIENT
  Age: 70 Year
  Sex: Female

DRUGS (1)
  1. DURVALUMAB [Suspect]
     Active Substance: DURVALUMAB
     Indication: Lung carcinoma cell type unspecified stage III
     Route: 042

REACTIONS (9)
  - Oesophageal spasm [Not Recovered/Not Resolved]
  - Oesophagitis [Not Recovered/Not Resolved]
  - Gastrooesophageal reflux disease [Unknown]
  - Lung opacity [Unknown]
  - Lung consolidation [Unknown]
  - Secretion discharge [Unknown]
  - Diarrhoea [Unknown]
  - Cough [Unknown]
  - Dyspnoea [Unknown]
